FAERS Safety Report 8062509-1 (Version None)
Quarter: 2012Q1

REPORT INFORMATION
  Report Type: 
  Country: None (occurrence: None)
  Receive Date: 20120117
  Receipt Date: 20120106
  Transmission Date: 20120608
  Serious: Yes (Hospitalization, Other)
  Sender: FDA-Public Use
  Company Number: 2012SP001281

PATIENT
  Age: 60 Year
  Sex: Female

DRUGS (3)
  1. PEGASYS [Suspect]
     Indication: HEPATITIS C
     Dates: start: 20111121, end: 20111224
  2. RIBAVIRIN [Suspect]
     Indication: HEPATITIS C
     Dates: start: 20111121, end: 20111224
  3. VICTRELIS [Suspect]
     Indication: HEPATITIS C
     Dates: start: 20111219, end: 20111224

REACTIONS (6)
  - BLOOD SODIUM DECREASED [None]
  - NAUSEA [None]
  - WHITE BLOOD CELL COUNT DECREASED [None]
  - DIARRHOEA [None]
  - ANAEMIA [None]
  - PLATELET COUNT DECREASED [None]
